FAERS Safety Report 9303750 (Version 2)
Quarter: 2013Q2

REPORT INFORMATION
  Report Type: Spontaneous
  Country: US (occurrence: US)
  Receive Date: 20130522
  Receipt Date: 20130605
  Transmission Date: 20140414
  Serious: No
  Sender: FDA-Public Use
  Company Number: US-PFIZER INC-2013153979

PATIENT
  Age: 71 Year
  Sex: Female
  Weight: 45.81 kg

DRUGS (8)
  1. TOVIAZ [Suspect]
     Indication: HYPERTONIC BLADDER
     Dosage: 8 MG, DAILY
     Dates: start: 2011
  2. DIOVAN [Concomitant]
     Indication: HYPERTENSION
     Dosage: 150 MG, DAILY
  3. DIOVAN [Concomitant]
     Indication: BLOOD PRESSURE ABNORMAL
  4. LEVOTHYROXINE [Concomitant]
     Indication: THYROID DISORDER
     Dosage: 90 UG, DAILY
  5. FLUOXETINE [Concomitant]
     Indication: NERVOUSNESS
     Dosage: 40 MG, DAILY
  6. CLONIDINE [Concomitant]
     Indication: BLOOD PRESSURE ABNORMAL
     Dosage: 0.2 MG, DAILY
  7. OXYCONTIN [Concomitant]
     Indication: PAIN
     Dosage: 60 MG, 3X/DAY
  8. BC [Concomitant]
     Indication: PAIN
     Dosage: UNK, AS NEEDED

REACTIONS (1)
  - Drug ineffective [Unknown]
